FAERS Safety Report 10102911 (Version 1)
Quarter: 2014Q2

REPORT INFORMATION
  Report Type: Spontaneous
  Country: CH (occurrence: None)
  Receive Date: 20140422
  Receipt Date: 20140422
  Transmission Date: 20141212
  Serious: Yes (Hospitalization)
  Sender: FDA-Public Use
  Company Number: 20140214

PATIENT
  Age: 38 Year
  Sex: Male

DRUGS (1)
  1. FERINJECT [Suspect]
     Indication: ANAEMIA
     Route: 041

REACTIONS (1)
  - Upper gastrointestinal haemorrhage [None]
